FAERS Safety Report 15179025 (Version 1)
Quarter: 2018Q3

REPORT INFORMATION
  Report Type: Spontaneous
  Country: ES (occurrence: ES)
  Receive Date: 20180723
  Receipt Date: 20180723
  Transmission Date: 20181010
  Serious: Yes (Other)
  Sender: FDA-Public Use
  Company Number: ES-AMGEN-ESPSP2018097261

PATIENT
  Age: 77 Year
  Sex: Female

DRUGS (3)
  1. ADVANTAN [Concomitant]
     Active Substance: METHYLPREDNISOLONE ACEPONATE
     Indication: PIGMENTATION DISORDER
     Dosage: 1 G, UNK
     Route: 061
  2. PROLIA [Suspect]
     Active Substance: DENOSUMAB
     Indication: OSTEOPOROSIS POSTMENOPAUSAL
     Dosage: 60 MG, Q6MO
     Route: 065
     Dates: start: 201807
  3. HEPARIN [Concomitant]
     Active Substance: HEPARIN SODIUM
     Indication: PIGMENTATION DISORDER
     Dosage: UNK
     Route: 061

REACTIONS (6)
  - Fall [Unknown]
  - Rash [Recovering/Resolving]
  - Pruritus [Recovering/Resolving]
  - Headache [Unknown]
  - Chest injury [Unknown]
  - Pyrexia [Recovered/Resolved]

NARRATIVE: CASE EVENT DATE: 201807
